FAERS Safety Report 5355154-X (Version None)
Quarter: 2007Q2

REPORT INFORMATION
  Report Type: 
  Country: None (occurrence: None)
  Receive Date: 20070613
  Receipt Date: 20070604
  Transmission Date: 20071010
  Serious: Yes (Death)
  Sender: FDA-Public Use
  Company Number: JP-ELI_LILLY_AND_COMPANY-JP200706001609

PATIENT
  Age: 42 Year
  Sex: Male

DRUGS (22)
  1. ZYPREXA [Suspect]
     Indication: SCHIZOPHRENIA, PARANOID TYPE
     Dosage: 10 MG, DAILY (1/D)
     Route: 048
     Dates: start: 20060808, end: 20060814
  2. ZYPREXA [Suspect]
     Dosage: 20 MG, DAILY (1/D)
     Route: 048
     Dates: start: 20060815
  3. ABILIFY [Concomitant]
     Dosage: 12 MG, DAILY (1/D)
     Route: 048
     Dates: start: 20060706, end: 20060721
  4. ABILIFY [Concomitant]
     Dosage: 18 MG, DAILY (1/D)
     Route: 048
     Dates: start: 20060722, end: 20060804
  5. ABILIFY [Concomitant]
     Dosage: 24 MG, DAILY (1/D)
     Route: 048
     Dates: start: 20060805, end: 20060807
  6. ABILIFY [Concomitant]
     Dosage: 18 MG, DAILY (1/D)
     Route: 048
     Dates: start: 20060808, end: 20060812
  7. ABILIFY [Concomitant]
     Dosage: 12 MG, DAILY (1/D)
     Route: 048
     Dates: start: 20060813, end: 20060818
  8. ABILIFY [Concomitant]
     Dosage: 6 MG, DAILY (1/D)
     Route: 048
     Dates: start: 20060819, end: 20060822
  9. SEROQUEL [Concomitant]
     Indication: SCHIZOPHRENIA, PARANOID TYPE
     Dosage: 25 MG, DAILY (1/D)
     Route: 048
     Dates: end: 20060721
  10. SEROQUEL [Concomitant]
     Dosage: 50 MG, DAILY (1/D)
     Route: 048
     Dates: start: 20060722, end: 20060804
  11. SEROQUEL [Concomitant]
     Dosage: 100 MG, DAILY (1/D)
     Route: 048
     Dates: start: 20070805
  12. SEROQUEL [Concomitant]
     Dosage: 150 MG, DAILY (1/D)
     Route: 048
  13. WYPAX [Concomitant]
     Indication: SCHIZOPHRENIA, PARANOID TYPE
     Dosage: 1 MG, DAILY (1/D)
     Route: 048
  14. WYPAX [Concomitant]
     Dosage: 1.5 MG, DAILY (1/D)
     Route: 048
  15. BIPERIDEN HYDROCHLORIDE TAB [Concomitant]
     Indication: EXTRAPYRAMIDAL DISORDER
     Dosage: 2 MG, DAILY (1/D)
     Route: 048
     Dates: start: 20060725, end: 20060727
  16. BIPERIDEN HYDROCHLORIDE TAB [Concomitant]
     Dosage: 4 MG, DAILY (1/D)
     Route: 048
     Dates: start: 20060728
  17. BIPERIDEN HYDROCHLORIDE TAB [Concomitant]
     Dosage: 3 MG, DAILY (1/D)
     Route: 048
  18. ROHYPNOL [Concomitant]
     Indication: INSOMNIA
     Dosage: 2 MG, DAILY (1/D)
     Route: 048
     Dates: end: 20060710
  19. ROHYPNOL [Concomitant]
     Dosage: 4 MG, DAILY (1/D)
     Route: 048
     Dates: start: 20060711, end: 20060918
  20. ROHYPNOL [Concomitant]
     Dosage: 3 MG, DAILY (1/D)
     Route: 048
     Dates: start: 20060919
  21. ROHYPNOL [Concomitant]
     Dosage: 2 MG, DAILY (1/D)
     Route: 048
  22. BICAMOL [Concomitant]
     Indication: EXTRAPYRAMIDAL DISORDER
     Dosage: 2 MG, UNK
     Route: 048

REACTIONS (1)
  - COMPLETED SUICIDE [None]
